FAERS Safety Report 9863935 (Version 3)
Quarter: 2014Q3

REPORT INFORMATION
  Report Type: Spontaneous
  Country: US (occurrence: US)
  Receive Date: 20140203
  Receipt Date: 20140916
  Transmission Date: 20150326
  Serious: Yes (Hospitalization, Other)
  Sender: FDA-Public Use
  Company Number: US-009507513-1402USA000672

PATIENT
  Sex: Female

DRUGS (2)
  1. NUVARING [Suspect]
     Active Substance: ETHINYL ESTRADIOL\ETONOGESTREL
     Indication: MENSTRUATION IRREGULAR
     Dosage: UNK
     Route: 067
     Dates: start: 2009
  2. NUVARING [Suspect]
     Active Substance: ETHINYL ESTRADIOL\ETONOGESTREL
     Indication: MENORRHAGIA

REACTIONS (11)
  - Off label use [Unknown]
  - Adverse drug reaction [Unknown]
  - Nausea [Unknown]
  - Pulmonary embolism [Unknown]
  - Abdominal pain upper [Unknown]
  - Anaemia [Unknown]
  - Packed red blood cell transfusion [Unknown]
  - Haemoglobin decreased [Unknown]
  - Chest pain [Unknown]
  - Iron deficiency anaemia [Unknown]
  - Headache [Unknown]

NARRATIVE: CASE EVENT DATE: 2009
